FAERS Safety Report 21037421 (Version 1)
Quarter: 2022Q3

REPORT INFORMATION
  Report Type: Spontaneous
  Country: US (occurrence: US)
  Receive Date: 20220703
  Receipt Date: 20220703
  Transmission Date: 20221026
  Serious: Yes (Disabling)
  Sender: FDA-Public Use
  Company Number: US-BRISTOL-MYERS SQUIBB COMPANY-2022-063279

PATIENT
  Age: 72 Year
  Sex: Male
  Weight: 108.40 kg

DRUGS (4)
  1. REVLIMID [Suspect]
     Active Substance: LENALIDOMIDE
     Indication: Plasma cell myeloma
     Route: 048
  2. ASPIRIN [Concomitant]
     Active Substance: ASPIRIN
     Route: 048
  3. GABAPENTIN [Concomitant]
     Active Substance: GABAPENTIN
     Route: 048
  4. LISINOPRIL [Concomitant]
     Active Substance: LISINOPRIL
     Dosage: 1/2 PILL BID
     Route: 048

REACTIONS (2)
  - Asthenia [Recovering/Resolving]
  - Dizziness [Recovering/Resolving]
